FAERS Safety Report 17018436 (Version 1)
Quarter: 2019Q4

REPORT INFORMATION
  Report Type: Report from Study
  Country: FR (occurrence: FR)
  Receive Date: 20191111
  Receipt Date: 20191111
  Transmission Date: 20200122
  Serious: Yes (Other)
  Sender: FDA-Public Use
  Company Number: NVSC2019FR020079

PATIENT
  Sex: Male
  Weight: 27.6 kg

DRUGS (1)
  1. TISAGENLECLEUCEL. [Suspect]
     Active Substance: TISAGENLECLEUCEL
     Indication: ACUTE LYMPHOCYTIC LEUKAEMIA
     Dosage: (2.3X10^6 CAR-POSITIVE VIABLE T-CELLS PER KG )
     Route: 042
     Dates: start: 20190612

REACTIONS (7)
  - Cytopenia [Recovering/Resolving]
  - Aspartate aminotransferase increased [Unknown]
  - Serum ferritin increased [Recovering/Resolving]
  - Hypogammaglobulinaemia [Not Recovered/Not Resolved]
  - Alanine aminotransferase increased [Unknown]
  - Bronchitis bacterial [Recovered/Resolved]
  - Thrombocytopenia [Recovering/Resolving]

NARRATIVE: CASE EVENT DATE: 20190702
